FAERS Safety Report 5316004-0 (Version None)
Quarter: 2007Q2

REPORT INFORMATION
  Report Type: 
  Country: None (occurrence: None)
  Receive Date: 20070503
  Receipt Date: 20070425
  Transmission Date: 20071010
  Serious: Yes (Other)
  Sender: FDA-Public Use
  Company Number: US-ROCHE-490990

PATIENT
  Age: 46 Year
  Sex: Female
  Weight: 59.9 kg

DRUGS (1)
  1. BONIVA [Suspect]
     Indication: OSTEOPOROSIS
     Dosage: ONE TIME DOSE OF IBANDRONIC ACID (BONIVA)
     Route: 042
     Dates: start: 20060922, end: 20060922

REACTIONS (1)
  - GASTRIC ULCER [None]
